FAERS Safety Report 16312581 (Version 1)
Quarter: 2019Q2

REPORT INFORMATION
  Report Type: Spontaneous
  Country: US (occurrence: US)
  Receive Date: 20190515
  Receipt Date: 20190515
  Transmission Date: 20190711
  Serious: No
  Sender: FDA-Public Use
  Company Number: US-TEVA-2019-US-1047081

PATIENT
  Sex: Female

DRUGS (1)
  1. GLYBURIDE 5MG TAB [Suspect]
     Active Substance: GLYBURIDE
     Indication: DIABETES MELLITUS

REACTIONS (6)
  - Blood pressure increased [Unknown]
  - Tremor [Unknown]
  - Product dispensing error [Unknown]
  - Hyperhidrosis [Unknown]
  - Weight increased [Unknown]
  - Asthenia [Unknown]
